FAERS Safety Report 8829610 (Version 4)
Quarter: 2012Q4

REPORT INFORMATION
  Report Type: 
  Country: US (occurrence: US)
  Receive Date: 20121008
  Receipt Date: 20121207
  Transmission Date: 20130627
  Serious: No
  Sender: FDA-Public Use
  Company Number: US-ASTRAZENECA-2012SE76485

PATIENT
  Age: 71 Year
  Sex: Male

DRUGS (2)
  1. SYMBICORT PMDI [Suspect]
     Route: 055
  2. OXYGEN [Concomitant]

REACTIONS (2)
  - Dyspnoea [Unknown]
  - Candidiasis [Unknown]
